FAERS Safety Report 23640945 (Version 1)
Quarter: 2024Q1

REPORT INFORMATION
  Report Type: Spontaneous
  Country: US (occurrence: US)
  Receive Date: 20240318
  Receipt Date: 20240318
  Transmission Date: 20240410
  Serious: No
  Sender: FDA-Public Use
  Company Number: US-PADAGIS-2024PAD00366

PATIENT

DRUGS (3)
  1. ERYTHROMYCIN [Suspect]
     Active Substance: ERYTHROMYCIN
     Indication: Eye injury
     Dosage: UNK, BID
     Route: 065
  2. PREDNISOLONE ACETATE [Suspect]
     Active Substance: PREDNISOLONE ACETATE
     Indication: Eye injury
     Dosage: UNK, EVERY 4 HOURS
     Route: 065
  3. ARTIFICIAL TEARS (POLYVINYL ALCOHOL) [Suspect]
     Active Substance: POLYVINYL ALCOHOL
     Indication: Eye injury
     Dosage: EVERY 4 HOURS
     Route: 065

REACTIONS (4)
  - Headache [Recovered/Resolved]
  - Sinus congestion [Recovered/Resolved]
  - Fatigue [Recovered/Resolved]
  - Product use in unapproved indication [Unknown]
